FAERS Safety Report 6477782-0 (Version None)
Quarter: 2009Q4

REPORT INFORMATION
  Report Type: 
  Country: None (occurrence: None)
  Receive Date: 20091207
  Receipt Date: 20091127
  Transmission Date: 20100525
  Serious: Yes (Death, Life-Threatening, Other)
  Sender: FDA-Public Use
  Company Number: JP-PFIZER INC-2009282900

PATIENT
  Age: 4 Year
  Sex: Male
  Weight: 13.4 kg

DRUGS (33)
  1. SILDENAFIL CITRATE [Suspect]
     Indication: PULMONARY ARTERIAL HYPERTENSION
     Dosage: 0.8 MG, 3X/DAY
     Route: 048
     Dates: start: 20090324
  2. GASCON [Concomitant]
     Route: 048
  3. BIOFERMIN [Concomitant]
     Route: 048
  4. DAI-KENCHU-TO [Concomitant]
     Route: 048
  5. MONILAC [Concomitant]
     Route: 048
  6. GASMOTIN [Concomitant]
     Route: 048
  7. DOPAMINE HYDROCHLORIDE [Concomitant]
     Route: 042
     Dates: start: 20090328, end: 20090520
  8. DOPAMINE HYDROCHLORIDE [Concomitant]
     Dates: start: 20090328, end: 20090520
  9. DOBUTAMINE [Concomitant]
     Route: 042
     Dates: start: 20090328, end: 20090329
  10. DOBUTAMINE [Concomitant]
     Dates: start: 20090328, end: 20090329
  11. MIDAZOLAM HCL [Concomitant]
     Route: 042
     Dates: start: 20090328
  12. MIDAZOLAM HCL [Concomitant]
     Dates: start: 20090328
  13. MORPHINE HYDROCHLORIDE [Concomitant]
     Route: 042
     Dates: start: 20090328
  14. MORPHINE HYDROCHLORIDE [Concomitant]
     Dates: start: 20090328
  15. ROCURONIUM BROMIDE [Concomitant]
     Route: 042
     Dates: start: 20090328
  16. ROCURONIUM BROMIDE [Concomitant]
     Dates: start: 20090328
  17. PHENOBARBITAL TAB [Concomitant]
     Route: 048
     Dates: start: 20090328
  18. PHENOBARBITAL TAB [Concomitant]
     Dates: start: 20090328
  19. CERCINE [Concomitant]
     Route: 048
     Dates: start: 20090328
  20. CERCINE [Concomitant]
     Dates: start: 20090328
  21. TRACLEER [Concomitant]
     Route: 048
     Dates: start: 20070919
  22. TRACLEER [Concomitant]
     Dates: start: 20070919
  23. PROCYLIN [Concomitant]
     Route: 048
     Dates: start: 20090226
  24. PROCYLIN [Concomitant]
     Dates: start: 20090226
  25. RENIVACE [Concomitant]
     Route: 048
     Dates: start: 20070810
  26. RENIVACE [Concomitant]
     Dates: start: 20070810
  27. ONON [Concomitant]
     Route: 048
     Dates: start: 20061206
  28. ONON [Concomitant]
     Dates: start: 20061206
  29. HOKUNALIN [Concomitant]
     Route: 062
     Dates: start: 20061201
  30. HOKUNALIN [Concomitant]
     Dates: start: 20061201
  31. MUCODYNE [Concomitant]
     Route: 048
     Dates: start: 20061201
  32. MUCODYNE [Concomitant]
     Dates: start: 20061201
  33. MUCOSOLVAN [Concomitant]
     Dosage: UNK
     Route: 048
     Dates: start: 20061201

REACTIONS (7)
  - ANAEMIA [None]
  - CARDIO-RESPIRATORY ARREST [None]
  - HEPATIC FUNCTION ABNORMAL [None]
  - HYPOTENSION [None]
  - HYPOXIA [None]
  - RESPIRATORY FAILURE [None]
  - STAPHYLOCOCCAL SEPSIS [None]
